FAERS Safety Report 10174150 (Version 1)
Quarter: 2014Q2

REPORT INFORMATION
  Report Type: Spontaneous
  Country: US (occurrence: None)
  Receive Date: 20140514
  Receipt Date: 20140514
  Transmission Date: 20141212
  Serious: No
  Sender: FDA-Public Use
  Company Number: None

PATIENT
  Age: 81 Year
  Sex: Male
  Weight: 95.26 kg

DRUGS (1)
  1. ALENDRONATE 70MG [Suspect]
     Indication: BONE DISORDER
     Dosage: 1 A WEEK
     Route: 048
     Dates: start: 20121012, end: 20131003

REACTIONS (1)
  - Arthralgia [None]
